FAERS Safety Report 16288574 (Version 3)
Quarter: 2020Q2

REPORT INFORMATION
  Report Type: Report from Study
  Country: None (occurrence: TR)
  Receive Date: 20190509
  Receipt Date: 20200513
  Transmission Date: 20200713
  Serious: Yes (Hospitalization)
  Sender: FDA-Public Use
  Company Number: TR-ABBVIE-19S-161-2774388-00

PATIENT
  Sex: Female
  Weight: 70 kg

DRUGS (7)
  1. DUODOPA [Suspect]
     Active Substance: CARBIDOPA\LEVODOPA
     Indication: PARKINSON^S DISEASE
     Dosage: MD(ML):0.00;CD(ML):3.60;ED(ML):1.50
     Route: 050
     Dates: start: 20181217, end: 20190507
  2. PK MERZ [Concomitant]
     Active Substance: AMANTADINE SULFATE
     Indication: PARKINSON^S DISEASE
     Route: 048
     Dates: start: 2006
  3. STALEVO [Concomitant]
     Active Substance: CARBIDOPA\ENTACAPONE\LEVODOPA
     Indication: PARKINSON^S DISEASE
     Route: 048
     Dates: start: 2019
  4. NEURONTIN [Concomitant]
     Active Substance: GABAPENTIN
     Indication: NEURALGIA
     Dosage: 3X1/2
     Route: 048
     Dates: start: 2008
  5. DUODOPA [Suspect]
     Active Substance: CARBIDOPA\LEVODOPA
     Dosage: MD(ML):3.40 .00; CD(ML):3.30; ED(ML):1.50
     Route: 050
     Dates: start: 20191113
  6. ASA [Concomitant]
     Active Substance: ASPIRIN
     Indication: ANTICOAGULANT THERAPY
     Route: 048
     Dates: start: 2017
  7. DUODOPA [Suspect]
     Active Substance: CARBIDOPA\LEVODOPA
     Dosage: MD(ML):0.00;CD(ML):3.30;ED(ML):1.50
     Route: 050
     Dates: start: 20190507, end: 20191113

REACTIONS (3)
  - Bradykinesia [Not Recovered/Not Resolved]
  - Speech disorder [Recovered/Resolved]
  - Dysphagia [Recovered/Resolved]
